FAERS Safety Report 19862292 (Version 1)
Quarter: 2021Q3

REPORT INFORMATION
  Report Type: Spontaneous
  Country: FR (occurrence: FR)
  Receive Date: 20210921
  Receipt Date: 20210921
  Transmission Date: 20211014
  Serious: Yes (Hospitalization)
  Sender: FDA-Public Use
  Company Number: FR-TEVA-2021-FR-1954046

PATIENT
  Age: 56 Year
  Sex: Female
  Weight: 75.8 kg

DRUGS (8)
  1. VALACICLOVIR [Suspect]
     Active Substance: VALACYCLOVIR HYDROCHLORIDE
     Indication: PROPHYLAXIS
     Dosage: 500 MG
     Route: 048
     Dates: start: 20210423, end: 20210522
  2. RITUXIMAB ((MAMMIFERE/HAMSTER/CELLULES CHO)) [Concomitant]
     Active Substance: RITUXIMAB
     Indication: MANTLE CELL LYMPHOMA STAGE IV
     Dosage: 650 MG
     Route: 042
     Dates: start: 20210423, end: 20210423
  3. ZARZIO 48 MU/0,5 ML, SOLUTION INJECTABLE OU POUR PERFUSION EN SERINGUE [Concomitant]
     Indication: PANCYTOPENIA
     Dosage: 0.5 ML,SOLUTION FOR INJECTION OR INFUSION IN PRE?FILLED SYRINGE
     Route: 059
     Dates: start: 20210427, end: 20210504
  4. ALLOPURINOL. [Concomitant]
     Active Substance: ALLOPURINOL
     Indication: PRODUCT USED FOR UNKNOWN INDICATION
     Dosage: 300 MG
     Route: 048
     Dates: start: 20210423
  5. CYTARABINE. [Concomitant]
     Active Substance: CYTARABINE
     Indication: MANTLE CELL LYMPHOMA STAGE IV
     Dosage: 3600 MG
     Route: 042
     Dates: start: 20210422, end: 20210422
  6. CARBOPLATINE [Concomitant]
     Active Substance: CARBOPLATIN
     Indication: MANTLE CELL LYMPHOMA STAGE IV
     Dosage: 690 MG
     Route: 042
     Dates: start: 20210422, end: 20210422
  7. BACTRIM [Suspect]
     Active Substance: SULFAMETHOXAZOLE\TRIMETHOPRIM
     Indication: PROPHYLAXIS
     Route: 048
     Dates: start: 20210430, end: 20210508
  8. PRIMPERAN [Concomitant]
     Active Substance: METOCLOPRAMIDE HYDROCHLORIDE
     Indication: PRODUCT USED FOR UNKNOWN INDICATION
     Dosage: 10 MG
     Route: 048
     Dates: start: 20210423

REACTIONS (1)
  - Rash maculo-papular [Unknown]

NARRATIVE: CASE EVENT DATE: 20210502
